FAERS Safety Report 7112165-1 (Version None)
Quarter: 2010Q4

REPORT INFORMATION
  Report Type: 
  Country: None (occurrence: None)
  Receive Date: 20101119
  Receipt Date: 20100204
  Transmission Date: 20110411
  Serious: No
  Sender: FDA-Public Use
  Company Number: A0841343A

PATIENT
  Sex: Male

DRUGS (1)
  1. AVODART [Suspect]
     Route: 065

REACTIONS (3)
  - BREAST ENLARGEMENT [None]
  - BREAST TENDERNESS [None]
  - CARDIAC OPERATION [None]
